FAERS Safety Report 16629045 (Version 2)
Quarter: 2019Q3

REPORT INFORMATION
  Report Type: Spontaneous
  Country: GB (occurrence: GB)
  Receive Date: 20190725
  Receipt Date: 20190909
  Transmission Date: 20191004
  Serious: Yes (Other)
  Sender: FDA-Public Use
  Company Number: GB-CELLTRION INC.-2019GB023019

PATIENT

DRUGS (1)
  1. RITUXIMAB (UNKNOWN) [Suspect]
     Active Substance: RITUXIMAB
     Indication: NON-HODGKIN^S LYMPHOMA
     Dosage: UNK UNK, Q2MO
     Route: 058

REACTIONS (4)
  - Vulvovaginal ulceration [Recovered/Resolved]
  - Product use issue [Unknown]
  - Postmenopausal haemorrhage [Recovered/Resolved]
  - Vaginal discharge [Recovered/Resolved]
